FAERS Safety Report 18610902 (Version 1)
Quarter: 2020Q4

REPORT INFORMATION
  Report Type: Spontaneous
  Country: US (occurrence: US)
  Receive Date: 20201213
  Receipt Date: 20201213
  Transmission Date: 20210114
  Serious: No
  Sender: FDA-Public Use
  Company Number: None

PATIENT
  Age: 49 Year
  Sex: Female
  Weight: 86.4 kg

DRUGS (2)
  1. ATORVASTATIN 20MG [Suspect]
     Active Substance: ATORVASTATIN
     Indication: BLOOD CHOLESTEROL INCREASED
     Dosage: ?          QUANTITY:90 TABLET(S);?
     Route: 048
     Dates: start: 20200929, end: 20201111
  2. FISH OIL [Concomitant]
     Active Substance: FISH OIL

REACTIONS (9)
  - Movement disorder [None]
  - Arthralgia [None]
  - Back pain [None]
  - Memory impairment [None]
  - Myalgia [None]
  - Confusional state [None]
  - Pain [None]
  - Chromaturia [None]
  - Gait disturbance [None]

NARRATIVE: CASE EVENT DATE: 20201015
